FAERS Safety Report 9051826 (Version 1)
Quarter: 2013Q1

REPORT INFORMATION
  Report Type: Spontaneous
  Country: US (occurrence: US)
  Receive Date: 20130207
  Receipt Date: 20130207
  Transmission Date: 20140127
  Serious: Yes (Hospitalization)
  Sender: FDA-Public Use
  Company Number: US-BAYER-2013-014225

PATIENT
  Age: 37 Year
  Sex: Female
  Weight: 92.88 kg

DRUGS (3)
  1. YAZ [Suspect]
  2. GIANVI [Suspect]
  3. ALLEGRA [Concomitant]

REACTIONS (3)
  - Cholecystitis chronic [None]
  - Pulmonary embolism [Recovering/Resolving]
  - Deep vein thrombosis [None]
